FAERS Safety Report 5700832-3 (Version None)
Quarter: 2008Q2

REPORT INFORMATION
  Report Type: 
  Country: None (occurrence: None)
  Receive Date: 20080410
  Receipt Date: 20080331
  Transmission Date: 20081010
  Serious: Yes (Death, Hospitalization)
  Sender: FDA-Public Use
  Company Number: AU-AMGEN-US268406

PATIENT
  Sex: Male

DRUGS (7)
  1. PANITUMUMAB [Suspect]
     Indication: SQUAMOUS CELL CARCINOMA
     Route: 042
     Dates: start: 20080107, end: 20080227
  2. CISPLATIN [Suspect]
     Route: 065
     Dates: end: 20080227
  3. FLUOROURACIL [Suspect]
     Route: 065
     Dates: end: 20080227
  4. PARACETAMOL [Concomitant]
     Route: 065
  5. MS CONTIN [Concomitant]
     Route: 048
  6. SPAN-K [Concomitant]
     Route: 048
  7. ENOXAPARIN SODIUM [Concomitant]
     Route: 065

REACTIONS (2)
  - ASPIRATION [None]
  - DEHYDRATION [None]
